FAERS Safety Report 16357509 (Version 2)
Quarter: 2019Q3

REPORT INFORMATION
  Report Type: Report from Study
  Country: KR (occurrence: KR)
  Receive Date: 20190527
  Receipt Date: 20190805
  Transmission Date: 20191004
  Serious: Yes (Hospitalization)
  Sender: FDA-Public Use
  Company Number: KR-009507513-1905KOR010457

PATIENT
  Sex: Male

DRUGS (10)
  1. PEMBROLIZUMAB. [Suspect]
     Active Substance: PEMBROLIZUMAB
     Indication: LUNG CARCINOMA CELL TYPE UNSPECIFIED STAGE 0
     Dosage: UNK
     Dates: start: 20190306
  2. PEMBROLIZUMAB. [Suspect]
     Active Substance: PEMBROLIZUMAB
     Dosage: QUANTITY 2, DAYS 1
     Dates: start: 20190417, end: 20190417
  3. ALIMTA [Concomitant]
     Active Substance: PEMETREXED DISODIUM
     Dosage: QUANTITY 6, DAYS 1
     Dates: start: 20190508, end: 20190619
  4. PEMBROLIZUMAB. [Suspect]
     Active Substance: PEMBROLIZUMAB
     Dosage: QUANTITY 6, DAYS 1
     Dates: start: 20190619, end: 20190619
  5. EMEND (FOSAPREPITANT DIMEGLUMINE) [Suspect]
     Active Substance: FOSAPREPITANT DIMEGLUMINE
     Dosage: QUANTITY 1, DAYS 1
     Route: 042
     Dates: start: 20190417, end: 20190417
  6. PEMBROLIZUMAB. [Suspect]
     Active Substance: PEMBROLIZUMAB
     Dosage: QUANTITY 4, DAYS 1
     Dates: start: 20190508, end: 20190508
  7. ALIMTA [Concomitant]
     Active Substance: PEMETREXED DISODIUM
     Dosage: QUANTITY 4, DAYS 1
     Dates: start: 20190417, end: 20190508
  8. CISPLATIN. [Concomitant]
     Active Substance: CISPLATIN
     Dosage: 10 MG/ 20 ML, QUANTITY 2, DAYS 1
     Dates: start: 20190417, end: 20190417
  9. PEMBROLIZUMAB. [Suspect]
     Active Substance: PEMBROLIZUMAB
     Dosage: UNK
     Dates: start: 20190327
  10. CISPLATIN. [Concomitant]
     Active Substance: CISPLATIN
     Dosage: 10 MG/ 20 ML, QUANTITY 2, DAYS 1
     Dates: start: 20190417, end: 20190417

REACTIONS (2)
  - Inappropriate schedule of product administration [Unknown]
  - Adverse event [Unknown]

NARRATIVE: CASE EVENT DATE: 2019
